FAERS Safety Report 9801547 (Version 1)
Quarter: 2014Q1

REPORT INFORMATION
  Report Type: Spontaneous
  Country: US (occurrence: US)
  Receive Date: 20140107
  Receipt Date: 20140107
  Transmission Date: 20141002
  Serious: No
  Sender: FDA-Public Use
  Company Number: US-GILEAD-US-CVT-100598

PATIENT
  Sex: Male

DRUGS (2)
  1. RANEXA [Suspect]
     Indication: PRODUCT USED FOR UNKNOWN INDICATION
     Route: 048
  2. RANEXA [Suspect]
     Route: 048

REACTIONS (2)
  - Tremor [Recovered/Resolved]
  - Vertigo [Recovered/Resolved]
